FAERS Safety Report 7732747-3 (Version None)
Quarter: 2011Q3

REPORT INFORMATION
  Report Type: 
  Country: None (occurrence: None)
  Receive Date: 20110829
  Receipt Date: 20110823
  Transmission Date: 20111222
  Serious: Yes (Other)
  Sender: FDA-Public Use
  Company Number: 2011028199

PATIENT
  Sex: Female
  Weight: 72.5755 kg

DRUGS (19)
  1. HIZENTRA [Suspect]
     Indication: IMMUNODEFICIENCY COMMON VARIABLE
     Dosage: SEE IMAGE
     Route: 058
     Dates: start: 20110701
  2. HIZENTRA [Suspect]
     Indication: HYPOGLOBULINAEMIA
     Dosage: SEE IMAGE
     Route: 058
     Dates: start: 20110701
  3. HIZENTRA [Suspect]
     Indication: IMMUNODEFICIENCY COMMON VARIABLE
     Dosage: SEE IMAGE
     Route: 058
     Dates: start: 20110403, end: 20110405
  4. HIZENTRA [Suspect]
     Indication: HYPOGLOBULINAEMIA
     Dosage: SEE IMAGE
     Route: 058
     Dates: start: 20110403, end: 20110405
  5. HIZENTRA [Suspect]
     Indication: IMMUNODEFICIENCY COMMON VARIABLE
     Dosage: SEE IMAGE
     Route: 058
     Dates: start: 20110701
  6. HIZENTRA [Suspect]
     Indication: HYPOGLOBULINAEMIA
     Dosage: SEE IMAGE
     Route: 058
     Dates: start: 20110701
  7. HIZENTRA [Suspect]
  8. TRAMADOL HCL [Concomitant]
  9. XOPENEX [Concomitant]
  10. QVAR [Concomitant]
  11. AUGMENTIN 9AUGMENTIN /00756801/) [Concomitant]
  12. HIZENTRA [Suspect]
  13. CIPRO [Concomitant]
  14. ZYRTEC [Concomitant]
  15. ALPRAZOLAM [Concomitant]
  16. HIZENTRA [Suspect]
  17. METHYLPREDNISOLONE [Concomitant]
  18. FLEXERIL [Concomitant]
  19. WARFARIN SODIUM [Concomitant]

REACTIONS (16)
  - FEELING ABNORMAL [None]
  - HEADACHE [None]
  - COAGULATION FACTOR VIII LEVEL INCREASED [None]
  - PYREXIA [None]
  - CHEST DISCOMFORT [None]
  - HEART RATE IRREGULAR [None]
  - DIARRHOEA [None]
  - INFUSION SITE THROMBOSIS [None]
  - ANXIETY [None]
  - HYPERHIDROSIS [None]
  - HEART RATE INCREASED [None]
  - DYSPNOEA [None]
  - DYSARTHRIA [None]
  - PAIN [None]
  - PRURITUS [None]
  - RESPIRATION ABNORMAL [None]
